FAERS Safety Report 22243458 (Version 3)
Quarter: 2023Q2

REPORT INFORMATION
  Report Type: Spontaneous
  Country: IT (occurrence: IT)
  Receive Date: 20230424
  Receipt Date: 20230602
  Transmission Date: 20230722
  Serious: Yes (Hospitalization, Other)
  Sender: FDA-Public Use
  Company Number: IT-TEVA-2023-IT-2878414

PATIENT
  Age: 55 Year
  Sex: Male
  Weight: 92 kg

DRUGS (3)
  1. AJOVY [Suspect]
     Active Substance: FREMANEZUMAB-VFRM
     Indication: Migraine
     Route: 065
     Dates: start: 20210915, end: 20230404
  2. NIMESULIDE [Concomitant]
     Active Substance: NIMESULIDE
     Indication: Headache
     Dosage: 100 MG AS NEEDED
     Route: 048
  3. INDOMETHACIN [Concomitant]
     Active Substance: INDOMETHACIN
     Indication: Headache
     Dosage: 50 MG AS NEEDED
     Route: 048

REACTIONS (10)
  - Acute myocardial infarction [Unknown]
  - Coronary artery disease [Unknown]
  - Ejection fraction [Unknown]
  - Back pain [Recovered/Resolved]
  - Myocardial necrosis marker increased [Recovered/Resolved]
  - Hypertension [Unknown]
  - Coronary artery dilatation [Unknown]
  - Acute myocardial infarction [Unknown]
  - Chest pain [Recovered/Resolved]
  - Inappropriate schedule of product administration [Unknown]

NARRATIVE: CASE EVENT DATE: 20221104
